FAERS Safety Report 6751203-2 (Version None)
Quarter: 2010Q2

REPORT INFORMATION
  Report Type: 
  Country: None (occurrence: None)
  Receive Date: 20100602
  Receipt Date: 20100527
  Transmission Date: 20101027
  Serious: No
  Sender: FDA-Public Use
  Company Number: US-JNJFOC-20100510840

PATIENT
  Sex: Male
  Weight: 99.79 kg

DRUGS (3)
  1. FENTANYL CITRATE [Suspect]
     Indication: NECK PAIN
     Route: 062
     Dates: start: 20100526
  2. FENTANYL CITRATE [Suspect]
     Indication: BACK PAIN
     Route: 062
     Dates: start: 20100526
  3. OXYCODONE [Concomitant]
     Indication: PAIN
     Route: 048

REACTIONS (2)
  - HEADACHE [None]
  - TREATMENT NONCOMPLIANCE [None]
